FAERS Safety Report 12522140 (Version 1)
Quarter: 2016Q3

REPORT INFORMATION
  Report Type: Report from Study
  Country: NL (occurrence: NL)
  Receive Date: 20160701
  Receipt Date: 20160701
  Transmission Date: 20161109
  Serious: Yes (Hospitalization)
  Sender: FDA-Public Use
  Company Number: NL-AMGEN-NLDSL2016083252

PATIENT
  Age: 51 Year
  Sex: Female

DRUGS (1)
  1. NEULASTA [Suspect]
     Active Substance: PEGFILGRASTIM
     Indication: NEUTROPENIA
     Dosage: 10MG/ML WWSP 0,6ML, Q3WK
     Route: 058

REACTIONS (2)
  - Influenza like illness [Unknown]
  - Bone pain [Unknown]

NARRATIVE: CASE EVENT DATE: 20160619
